FAERS Safety Report 8843629 (Version 2)
Quarter: 2015Q2

REPORT INFORMATION
  Report Type: Report from Study
  Country: US (occurrence: US)
  Receive Date: 20121016
  Receipt Date: 20150624
  Transmission Date: 20150821
  Serious: Yes (Other)
  Sender: FDA-Public Use
  Company Number: US-ROCHE-1140377

PATIENT
  Sex: Female
  Weight: 20.5 kg

DRUGS (10)
  1. VITAMIN E [Concomitant]
     Active Substance: .ALPHA.-TOCOPHEROL
  2. NUTROPIN [Suspect]
     Active Substance: SOMATROPIN
     Indication: PRADER-WILLI SYNDROME
     Route: 058
     Dates: start: 19990611
  3. SYNTHROID [Concomitant]
     Active Substance: LEVOTHYROXINE SODIUM
     Route: 048
  4. BUSPAR [Concomitant]
     Active Substance: BUSPIRONE HYDROCHLORIDE
  5. LEXAPRO [Concomitant]
     Active Substance: ESCITALOPRAM OXALATE
  6. RITALIN [Concomitant]
     Active Substance: METHYLPHENIDATE HYDROCHLORIDE
  7. L-CARNITINE [Concomitant]
     Active Substance: CARNITINE
  8. NUTROPIN [Suspect]
     Active Substance: SOMATROPIN
     Indication: GROWTH HORMONE DEFICIENCY
     Route: 058
  9. NUTROPIN [Suspect]
     Active Substance: SOMATROPIN
     Route: 058
  10. VITAMIN A [Concomitant]
     Active Substance: VITAMIN A

REACTIONS (8)
  - Contusion [Unknown]
  - Hypotension [Unknown]
  - Headache [Unknown]
  - Enamel anomaly [Unknown]
  - Scab [Unknown]
  - Insulin-like growth factor increased [Unknown]
  - Varicella [Unknown]
  - Snoring [Unknown]
